FAERS Safety Report 16116734 (Version 1)
Quarter: 2019Q1

REPORT INFORMATION
  Report Type: Spontaneous
  Country: JP (occurrence: JP)
  Receive Date: 20190326
  Receipt Date: 20190326
  Transmission Date: 20190418
  Serious: Yes (Hospitalization)
  Sender: FDA-Public Use
  Company Number: JP-ASTELLAS-2019US012184

PATIENT
  Age: 59 Year
  Sex: Female

DRUGS (2)
  1. FLT3 LIGAND [Concomitant]
     Indication: PRODUCT USED FOR UNKNOWN INDICATION
     Dosage: UNK UNK, UNKNOWN FREQ.
     Route: 065
     Dates: start: 201705
  2. AMPHOTERICIN B, LIPOSOME [Suspect]
     Active Substance: AMPHOTERICIN B
     Indication: ACUTE MYELOID LEUKAEMIA
     Route: 041

REACTIONS (6)
  - Blast cell count increased [Unknown]
  - Neutrophil count decreased [Unknown]
  - Neutrophil count increased [Unknown]
  - Blast cell count decreased [Unknown]
  - Blood lactate dehydrogenase increased [Unknown]
  - Blood lactate dehydrogenase decreased [Unknown]
